FAERS Safety Report 8967803 (Version 1)
Quarter: 2012Q4

REPORT INFORMATION
  Report Type: 
  Country: FR (occurrence: FR)
  Receive Date: 20121217
  Receipt Date: 20121217
  Transmission Date: 20130627
  Serious: Yes (Hospitalization)
  Sender: FDA-Public Use
  Company Number: FR-MERCK-1212FRA002562

PATIENT
  Age: 58 Year
  Sex: Male

DRUGS (13)
  1. CANCIDAS [Suspect]
     Indication: CANDIDURIA
     Dosage: 70 mg, qd
     Route: 042
     Dates: start: 20120913
  2. TRIFLUCAN [Suspect]
     Indication: CANDIDURIA
     Dosage: 400 mg, qd
     Route: 048
     Dates: start: 20120908, end: 20121016
  3. ODRIK [Concomitant]
     Dosage: 2 mg, UNK
  4. TAHOR [Concomitant]
     Dosage: 40 mg, UNK
  5. INEXIUM [Concomitant]
     Dosage: 20 mg, UNK
  6. KARDEGIC [Concomitant]
     Dosage: 75 mg, UNK
  7. ALDACTONE TABLETS [Concomitant]
     Dosage: 25 mg, UNK
  8. VITAMINS (UNSPECIFIED) [Concomitant]
     Dosage: 3 DF, UNK
  9. PROCORALAN [Concomitant]
     Dosage: 7.5 mg, bid
  10. DETENSIEL [Concomitant]
     Dosage: 10 mg, UNK
  11. NOVO-NORM [Concomitant]
     Dosage: 1 mg, tid
  12. LANTUS [Concomitant]
     Dosage: 24 UNK, UNK
  13. NOVORAPID [Concomitant]

REACTIONS (1)
  - Liver disorder [Unknown]
